FAERS Safety Report 4356393-7 (Version None)
Quarter: 2004Q2

REPORT INFORMATION
  Report Type: 
  Country: None (occurrence: None)
  Receive Date: 20040506
  Receipt Date: 20040428
  Transmission Date: 20050107
  Serious: Yes (Disabling, Other)
  Sender: FDA-Public Use
  Company Number: 2004-03-0328

PATIENT
  Age: 58 Year
  Sex: Female
  Weight: 78.0187 kg

DRUGS (6)
  1. PEG-INTRON [Suspect]
     Indication: HEPATITIS C
     Dosage: 120 MCG QW SUBCUTANEOUS
     Route: 058
     Dates: start: 20020910, end: 20030401
  2. REBETOL [Suspect]
     Indication: HEPATITIS C
     Dosage: 1000 MG QD ORAL
     Route: 048
     Dates: start: 20020910, end: 20030401
  3. PREVACID [Concomitant]
  4. ZOLOFT [Concomitant]
  5. VITAMIN C [Concomitant]
  6. VITAMIN E [Concomitant]

REACTIONS (3)
  - BLINDNESS UNILATERAL [None]
  - GLAUCOMA [None]
  - THROMBOSIS [None]
